FAERS Safety Report 20185033 (Version 1)
Quarter: 2021Q4

REPORT INFORMATION
  Report Type: Other
  Country: MY (occurrence: None)
  Receive Date: 20211215
  Receipt Date: 20211215
  Transmission Date: 20220303
  Serious: Yes (Death, Hospitalization, Other)
  Sender: FDA-Public Use
  Company Number: MY-Saptalis Pharmaceuticals,LLC-000150

PATIENT
  Age: 27 Year
  Sex: Male

DRUGS (2)
  1. ERYTHROMYCIN [Suspect]
     Active Substance: ERYTHROMYCIN
     Indication: Diphtheria
     Dosage: 500 MG Q6H (EVERY 6 HOURS)
     Route: 042
  2. DIPHTHERIA ANTITOXIN [Suspect]
     Active Substance: DIPHTHERIA ANTITOXIN
     Indication: Diphtheria
     Dosage: 100,000 UNITS

REACTIONS (8)
  - Hypotension [Unknown]
  - Acute kidney injury [Unknown]
  - Metabolic acidosis [Unknown]
  - Transaminases increased [Unknown]
  - Condition aggravated [Unknown]
  - Drug ineffective [Unknown]
  - Diphtheria [Fatal]
  - Multiple organ dysfunction syndrome [Fatal]
